FAERS Safety Report 21301596 (Version 1)
Quarter: 2022Q3

REPORT INFORMATION
  Report Type: Spontaneous
  Country: US (occurrence: None)
  Receive Date: 20220906
  Receipt Date: 20220906
  Transmission Date: 20221027
  Serious: Yes (Other)
  Sender: FDA-Public Use
  Company Number: None

PATIENT
  Age: 47 Year
  Sex: Female

DRUGS (9)
  1. BENLYSTA [Suspect]
     Active Substance: BELIMUMAB
     Indication: Product used for unknown indication
     Dosage: FREQUENCY : WEEKLY;?
     Route: 058
     Dates: start: 20220811
  2. BENLYSTA [Suspect]
     Active Substance: BELIMUMAB
     Dosage: OTHER QUANTITY : 1 PEN (200 MG);?FREQUENCY : WEEKLY;?
     Route: 058
  3. CELECOXIB [Concomitant]
     Active Substance: CELECOXIB
  4. DULOXETINE [Concomitant]
     Active Substance: DULOXETINE
  5. GABAPENTIN [Concomitant]
     Active Substance: GABAPENTIN
  6. HYDROXYCHLOROQUINE [Concomitant]
     Active Substance: HYDROXYCHLOROQUINE
  7. LEVOTHYROXINE [Concomitant]
     Active Substance: LEVOTHYROXINE
  8. TIZANIDINE [Concomitant]
     Active Substance: TIZANIDINE
  9. TRIAMCINOLON OIN [Concomitant]

REACTIONS (3)
  - Fatigue [None]
  - Diarrhoea [None]
  - Product storage error [None]

NARRATIVE: CASE EVENT DATE: 20220811
